FAERS Safety Report 14177030 (Version 1)
Quarter: 2017Q4

REPORT INFORMATION
  Report Type: Report from Study
  Country: DE (occurrence: DE)
  Receive Date: 20171110
  Receipt Date: 20171110
  Transmission Date: 20180321
  Serious: Yes (Other)
  Sender: FDA-Public Use
  Company Number: DE-ROCHE-2013829

PATIENT
  Age: 59 Year
  Sex: Female

DRUGS (2)
  1. PERTUZUMAB. [Suspect]
     Active Substance: PERTUZUMAB
     Indication: HER-2 POSITIVE BREAST CANCER
     Route: 042
     Dates: start: 20140121, end: 20150318
  2. TRASTUZUMAB. [Suspect]
     Active Substance: TRASTUZUMAB
     Indication: HER-2 POSITIVE BREAST CANCER
     Route: 042
     Dates: start: 20140121, end: 20150318

REACTIONS (23)
  - Myositis [Not Recovered/Not Resolved]
  - Pain [Not Recovered/Not Resolved]
  - Fungal infection [Not Recovered/Not Resolved]
  - Painful respiration [Recovered/Resolved]
  - Poikiloderma [Not Recovered/Not Resolved]
  - Dysphagia [Recovered/Resolved]
  - Eyelid oedema [Not Recovered/Not Resolved]
  - Urinary tract infection [Not Recovered/Not Resolved]
  - Urticaria [Not Recovered/Not Resolved]
  - Epistaxis [Recovered/Resolved]
  - Pneumonia aspiration [Not Recovered/Not Resolved]
  - Hypokinesia [Recovered/Resolved]
  - Dysphonia [Recovered/Resolved]
  - Urinary incontinence [Not Recovered/Not Resolved]
  - Eyelid ptosis [Not Recovered/Not Resolved]
  - Laryngeal oedema [Not Recovered/Not Resolved]
  - Stomatitis [Recovered/Resolved]
  - Cough [Recovered/Resolved]
  - Gait disturbance [Not Recovered/Not Resolved]
  - Abdominal pain upper [Recovered/Resolved]
  - Stridor [Not Recovered/Not Resolved]
  - Pruritus [Recovered/Resolved]
  - Vocal cord paralysis [Not Recovered/Not Resolved]

NARRATIVE: CASE EVENT DATE: 20140121
